FAERS Safety Report 17543887 (Version 1)
Quarter: 2020Q1

REPORT INFORMATION
  Report Type: Spontaneous
  Country: GB (occurrence: GB)
  Receive Date: 20200316
  Receipt Date: 20200316
  Transmission Date: 20200409
  Serious: Yes (Life-Threatening, Hospitalization, Disabling, Other)
  Sender: FDA-Public Use
  Company Number: GB-SUN PHARMACEUTICAL INDUSTRIES LTD-2020RR-240476

PATIENT
  Age: 24 Year
  Sex: Female
  Weight: 69.85 kg

DRUGS (2)
  1. VENLAFAXINE [Suspect]
     Active Substance: VENLAFAXINE HYDROCHLORIDE
     Indication: MAJOR DEPRESSION
     Dosage: ALL DOSES, RIGHT UP TO MAXIMUM. ()
     Route: 048
     Dates: start: 20130101, end: 20171119
  2. PREGABALIN. [Concomitant]
     Active Substance: PREGABALIN
     Indication: PRODUCT USED FOR UNKNOWN INDICATION
     Dosage: ()
     Route: 065

REACTIONS (25)
  - Enuresis [Recovered/Resolved]
  - Drug withdrawal syndrome [Recovered/Resolved]
  - Migraine [Recovered/Resolved]
  - Hyperhidrosis [Recovered/Resolved with Sequelae]
  - Suicide attempt [Recovered/Resolved]
  - Amnesia [Not Recovered/Not Resolved]
  - Pruritus [Recovered/Resolved]
  - Speech disorder [Not Recovered/Not Resolved]
  - Vision blurred [Not Recovered/Not Resolved]
  - Dizziness [Recovered/Resolved]
  - Insomnia [Recovered/Resolved with Sequelae]
  - Anger [Recovered/Resolved]
  - Paraesthesia [Recovered/Resolved with Sequelae]
  - Depression suicidal [Recovered/Resolved with Sequelae]
  - Allodynia [Recovered/Resolved with Sequelae]
  - Muscle fatigue [Recovered/Resolved]
  - Night sweats [Not Recovered/Not Resolved]
  - Hypertension [Recovered/Resolved]
  - Feeling abnormal [Recovered/Resolved with Sequelae]
  - Malaise [Recovered/Resolved]
  - Psychotic disorder [Unknown]
  - Suicidal ideation [Recovered/Resolved with Sequelae]
  - Hallucination [Recovered/Resolved]
  - Abnormal weight gain [Recovering/Resolving]
  - Muscle twitching [Recovered/Resolved]

NARRATIVE: CASE EVENT DATE: 20130101
